FAERS Safety Report 9605311 (Version 3)
Quarter: 2013Q4

REPORT INFORMATION
  Report Type: Spontaneous
  Country: IT (occurrence: IT)
  Receive Date: 20131008
  Receipt Date: 20131122
  Transmission Date: 20140711
  Serious: Yes (Hospitalization)
  Sender: FDA-Public Use
  Company Number: IT-ASTRAZENECA-2013SE72524

PATIENT
  Age: 9654 Day
  Sex: Female

DRUGS (6)
  1. QUETIAPINE [Suspect]
     Indication: INTENTIONAL SELF-INJURY
     Route: 048
  2. QUETIAPINE [Suspect]
     Indication: DEPRESSION
     Route: 048
  3. QUETIAPINE [Suspect]
     Indication: INTENTIONAL SELF-INJURY
     Route: 048
     Dates: start: 20130816, end: 20130816
  4. QUETIAPINE [Suspect]
     Indication: DEPRESSION
     Route: 048
     Dates: start: 20130816, end: 20130816
  5. VALIUM [Concomitant]
     Dosage: 5MG/ ML, 20 ML BOTTLE
     Route: 048
  6. ARIPIPRAZOLE [Concomitant]
     Indication: DEPRESSION

REACTIONS (4)
  - Drug abuse [Recovering/Resolving]
  - Miosis [Recovering/Resolving]
  - Bradyphrenia [Recovering/Resolving]
  - Sopor [Unknown]
